FAERS Safety Report 6959949-8 (Version None)
Quarter: 2010Q3

REPORT INFORMATION
  Report Type: 
  Country: None (occurrence: None)
  Receive Date: 20100901
  Receipt Date: 20100820
  Transmission Date: 20110219
  Serious: Yes (Other)
  Sender: FDA-Public Use
  Company Number: PHHY2010TH55081

PATIENT
  Age: 59 Year
  Sex: Female

DRUGS (1)
  1. ZOLEDRONIC [Suspect]
     Dosage: UNK
     Dates: start: 20090601

REACTIONS (2)
  - DIZZINESS [None]
  - SYNCOPE [None]
